FAERS Safety Report 8806748 (Version 2)
Quarter: 2012Q4

REPORT INFORMATION
  Report Type: 
  Country: DE (occurrence: DE)
  Receive Date: 20120925
  Receipt Date: 20121011
  Transmission Date: 20130627
  Serious: Yes (Other)
  Sender: FDA-Public Use
  Company Number: PHHY2012DE081520

PATIENT

DRUGS (5)
  1. INFLUENZA VIRUS VACCINE NOS [Suspect]
     Indication: IMMUNISATION
     Dosage: 1 DF
  2. LAMOTRIGINE [Suspect]
     Indication: EPILEPSY
     Dosage: 200 mg, BID
     Route: 048
     Dates: start: 20110709, end: 20120321
  3. HUMALOG [Concomitant]
     Indication: TYPE 1 DIABETES MELLITUS
     Dosage: 1 DF, UNK
     Route: 058
     Dates: start: 20110709, end: 20120321
  4. NOVORAPID [Concomitant]
     Indication: TYPE 1 DIABETES MELLITUS
     Dosage: 1 DF, UNK
     Route: 058
     Dates: start: 20110709, end: 20120321
  5. FOLSAN [Concomitant]
     Indication: PROPHYLAXIS
     Dosage: 5 mg, QD
     Route: 048

REACTIONS (3)
  - Premature delivery [Unknown]
  - Periodontitis [Unknown]
  - Maternal exposure during pregnancy [Unknown]
